FAERS Safety Report 15424076 (Version 1)
Quarter: 2018Q3

REPORT INFORMATION
  Report Type: Report from Study
  Country: CN (occurrence: CN)
  Receive Date: 20180925
  Receipt Date: 20180925
  Transmission Date: 20181010
  Serious: Yes (Hospitalization)
  Sender: FDA-Public Use
  Company Number: PHHY2018CN083338

PATIENT
  Age: 32 Year
  Sex: Male
  Weight: 72 kg

DRUGS (3)
  1. MYFORTIC [Suspect]
     Active Substance: MYCOPHENOLATE SODIUM
     Indication: IMMUNOSUPPRESSANT DRUG THERAPY
     Dosage: 720 OT, UNK
     Route: 048
     Dates: start: 20180823, end: 20180830
  2. MYFORTIC [Suspect]
     Active Substance: MYCOPHENOLATE SODIUM
     Indication: RENAL TRANSPLANT
     Dosage: 1080 OT, UNK
     Route: 048
     Dates: start: 20180704, end: 20180822
  3. MYFORTIC [Suspect]
     Active Substance: MYCOPHENOLATE SODIUM
     Dosage: 360 OT, UNK
     Route: 048
     Dates: start: 20180831, end: 20180901

REACTIONS (6)
  - Fatigue [Recovered/Resolved]
  - Chills [Recovered/Resolved]
  - Blood creatinine increased [Recovered/Resolved]
  - Cytomegalovirus infection [Recovered/Resolved]
  - Myalgia [Recovered/Resolved]
  - Pyrexia [Recovered/Resolved]

NARRATIVE: CASE EVENT DATE: 20180713
